FAERS Safety Report 4268263-3 (Version None)
Quarter: 2004Q1

REPORT INFORMATION
  Report Type: 
  Country: None (occurrence: None)
  Receive Date: 20040112
  Receipt Date: 20031030
  Transmission Date: 20041129
  Serious: Yes (Hospitalization)
  Sender: FDA-Public Use
  Company Number: 200311282JP

PATIENT
  Age: 46 Year
  Sex: Female
  Weight: 152 kg

DRUGS (10)
  1. ARAVA [Suspect]
     Indication: RHEUMATOID ARTHRITIS
     Route: 048
     Dates: start: 20030917, end: 20031014
  2. METHOTREXATE [Concomitant]
     Indication: RHEUMATOID ARTHRITIS
     Route: 048
  3. RIMATIL [Concomitant]
     Indication: RHEUMATOID ARTHRITIS
     Route: 048
  4. LORCAM [Concomitant]
     Indication: PAIN
     Route: 048
  5. CALFINA [Concomitant]
     Indication: OSTEOPOROSIS
     Route: 048
  6. SELBEX [Concomitant]
     Route: 048
  7. FOLIAMIN [Concomitant]
     Dosage: DOSE: 5MG/WEEK
     Route: 048
  8. ACTOS [Concomitant]
     Indication: DIABETES MELLITUS
     Route: 048
  9. HUMACART-N [Concomitant]
     Indication: DIABETES MELLITUS
     Route: 058
  10. HUMACART-N [Concomitant]
     Route: 058

REACTIONS (11)
  - ALANINE AMINOTRANSFERASE INCREASED [None]
  - ANOREXIA [None]
  - ASPARTATE AMINOTRANSFERASE INCREASED [None]
  - ASTHENIA [None]
  - BILIRUBIN CONJUGATED INCREASED [None]
  - BLOOD ALKALINE PHOSPHATASE INCREASED [None]
  - BLOOD BILIRUBIN INCREASED [None]
  - BLOOD LACTATE DEHYDROGENASE INCREASED [None]
  - GAMMA-GLUTAMYLTRANSFERASE INCREASED [None]
  - MALAISE [None]
  - NAUSEA [None]
